FAERS Safety Report 6770279-X (Version None)
Quarter: 2010Q2

REPORT INFORMATION
  Report Type: 
  Country: None (occurrence: None)
  Receive Date: 20100615
  Receipt Date: 20100610
  Transmission Date: 20101027
  Serious: Yes (Hospitalization)
  Sender: FDA-Public Use
  Company Number: TR-BRISTOL-MYERS SQUIBB COMPANY-15134810

PATIENT
  Age: 78 Year
  Sex: Male
  Weight: 60 kg

DRUGS (11)
  1. CISPLATIN [Suspect]
     Indication: NON-SMALL CELL LUNG CANCER
     Dosage: ON DAY 1 OF EVERY 21 DAYS, LAST DOSE RECEIVED ON 22APR2010
     Route: 042
     Dates: start: 20100331
  2. ALIMTA [Suspect]
     Indication: NON-SMALL CELL LUNG CANCER
     Dosage: ON DAY 1 OF EVERY 21 DAYS, LAST DOSE RECEIVED ON 22APR2010
     Route: 042
     Dates: start: 20100331
  3. FOLIC ACID [Concomitant]
     Indication: PROPHYLAXIS
     Dates: start: 20100325
  4. VITAMIN B-12 [Concomitant]
     Indication: PROPHYLAXIS
     Dates: start: 20100325, end: 20100511
  5. GLUCOBAY [Concomitant]
     Indication: DIABETES MELLITUS
  6. GLUCOTROL [Concomitant]
     Indication: DIABETES MELLITUS
  7. PLAVIX [Concomitant]
     Indication: HYPERTENSION
  8. INDAPAMIDE [Concomitant]
     Indication: HYPERTENSION
  9. METOPROLOL TARTRATE [Concomitant]
     Indication: HYPERTENSION
  10. DEXAMETHASONE [Concomitant]
     Indication: PROPHYLAXIS
  11. DELIX [Concomitant]
     Indication: HYPERTENSION

REACTIONS (1)
  - THROMBOPHLEBITIS [None]
